FAERS Safety Report 17962364 (Version 3)
Quarter: 2020Q3

REPORT INFORMATION
  Report Type: Spontaneous
  Country: GB (occurrence: GB)
  Receive Date: 20200630
  Receipt Date: 20200724
  Transmission Date: 20201103
  Serious: Yes (Other)
  Sender: FDA-Public Use
  Company Number: GB-MYLANLABS-2012SP004012

PATIENT
  Age: 54 Year
  Sex: Male

DRUGS (128)
  1. ACTRAPID [Suspect]
     Active Substance: INSULIN HUMAN
     Dosage: 50 UNITS/50ML
     Route: 042
  2. SANDO K                            /00031402/ [Suspect]
     Active Substance: POTASSIUM CHLORIDE
     Dosage: 6 DF, QD
     Route: 065
  3. POTASSIUM PHOSPHATE                /00493501/ [Suspect]
     Active Substance: POTASSIUM PHOSPHATE, DIBASIC
     Indication: ILL-DEFINED DISORDER
     Dosage: DAILY DOSE: UNKNOWN
     Dates: start: 2006
  4. POTASSIUM CHLORIDE. [Suspect]
     Active Substance: POTASSIUM CHLORIDE
     Dosage: UNK, QD, (40MMOLS/100ML INFUSION)
     Route: 065
     Dates: start: 2006
  5. AMOXICILLIN TRIHYDRATE [Suspect]
     Active Substance: AMOXICILLIN
     Indication: ILL-DEFINED DISORDER
     Dosage: DAILY DOSE: 3 GRAM(S), 1 G, TID
     Route: 042
  6. TINZAPARIN [Suspect]
     Active Substance: TINZAPARIN
     Dosage: 3.5 ML, QD
     Route: 065
  7. TINZAPARIN [Suspect]
     Active Substance: TINZAPARIN
     Dosage: 3500 UG, QD
     Route: 065
     Dates: start: 2006
  8. ATROVENT [Concomitant]
     Active Substance: IPRATROPIUM BROMIDE
     Dosage: AS REQUIRED
     Route: 065
  9. CLAVULANATE POTASSIUM [Concomitant]
     Active Substance: CLAVULANATE POTASSIUM
     Dosage: 375 MILLIGRAM, TID
     Dates: start: 20060913
  10. TAZOCIN [Concomitant]
     Active Substance: PIPERACILLIN SODIUM\TAZOBACTAM SODIUM
     Dosage: 4.5 MILLIGRAM, QD, (INCREASED TO 4 TIMES DAILY BETWEEN 04/10/2006 AND 09/10/2006)
     Route: 048
     Dates: start: 2006
  11. CO?AMOXICLAV                       /01000301/ [Concomitant]
     Active Substance: AMOXICILLIN\CLAVULANATE POTASSIUM
     Dosage: 1125 MG, QD
     Route: 065
     Dates: start: 20060913
  12. SODIUM BICARBONATE. [Suspect]
     Active Substance: SODIUM BICARBONATE
     Dosage: 100ML/HR
     Route: 042
  13. CLEXANE [Suspect]
     Active Substance: ENOXAPARIN SODIUM
     Indication: ILL-DEFINED DISORDER
     Dosage: DAILY DOSE: 20 MILLIGRAM(S)
     Route: 058
     Dates: start: 2006
  14. CLEXANE [Suspect]
     Active Substance: ENOXAPARIN SODIUM
     Dosage: 20 MG, QD
     Route: 058
  15. FLUCONAZOLE. [Suspect]
     Active Substance: FLUCONAZOLE
     Dosage: 200 MILLIGRAM, QD
     Route: 042
  16. ZOTON [Suspect]
     Active Substance: LANSOPRAZOLE
     Indication: ILL-DEFINED DISORDER
     Dosage: DAILY DOSE: 30 MILLIGRAM(S)
     Route: 065
     Dates: start: 2006
  17. SANDO K                            /00031402/ [Suspect]
     Active Substance: POTASSIUM CHLORIDE
     Dosage: 2 DOSAGE FORM
  18. SILVER SULPHADIAZINE [Suspect]
     Active Substance: SILVER SULFADIAZINE
     Indication: ILL-DEFINED DISORDER
     Dosage: UNK
     Route: 061
     Dates: start: 2006
  19. PROPOFOL. [Suspect]
     Active Substance: PROPOFOL
     Indication: ILL-DEFINED DISORDER
     Dosage: UNK
     Route: 065
  20. PROPOFOL. [Suspect]
     Active Substance: PROPOFOL
     Dosage: UNK
     Route: 042
  21. NORADRENALIN [Suspect]
     Active Substance: NOREPINEPHRINE\NOREPINEPHRINE BITARTRATE
     Indication: ILL-DEFINED DISORDER
     Dosage: UNK
     Route: 065
     Dates: start: 2006
  22. TINZAPARIN [Suspect]
     Active Substance: TINZAPARIN
     Indication: ILL-DEFINED DISORDER
     Dosage: 3500 MICROGRAM, QD
     Dates: start: 2006
  23. AMOXICILLIN. [Concomitant]
     Active Substance: AMOXICILLIN
     Indication: ILL-DEFINED DISORDER
     Dosage: 250 MILLIGRAM
     Route: 048
     Dates: start: 20060913
  24. AMOXICILLIN. [Concomitant]
     Active Substance: AMOXICILLIN
     Dosage: 375 MILLIGRAM, TID
     Dates: start: 20060913
  25. ERYTHROMYCIN                       /00020902/ [Concomitant]
     Active Substance: ERYTHROMYCIN
     Indication: ILL-DEFINED DISORDER
     Dosage: 250 MILLIGRAM
     Route: 050
  26. LACTULOSE. [Suspect]
     Active Substance: LACTULOSE
     Dosage: 1 MILLILITER, QD
     Route: 065
  27. FUROSEMIDE. [Suspect]
     Active Substance: FUROSEMIDE
     Dosage: 20MG 2/1 DAYS
     Route: 042
  28. ALFENTANIL. [Suspect]
     Active Substance: ALFENTANIL
     Dosage: UNK
     Route: 065
  29. SANDO K                            /00031402/ [Suspect]
     Active Substance: POTASSIUM CHLORIDE
     Dosage: 2 DL 3/1DAYS
     Route: 065
  30. POTASSIUM CHLORIDE. [Suspect]
     Active Substance: POTASSIUM CHLORIDE
     Dosage: UNK
     Route: 065
  31. DOBUTAMINE [Suspect]
     Active Substance: DOBUTAMINE HYDROCHLORIDE
     Indication: ILL-DEFINED DISORDER
     Dosage: UNK
     Route: 065
  32. AMOXICILLIN. [Concomitant]
     Active Substance: AMOXICILLIN
     Dosage: 1 G, TID
     Route: 042
     Dates: start: 20060913
  33. PANTOPRAZOLE [Concomitant]
     Active Substance: PANTOPRAZOLE
     Dosage: 40 MG, QD
     Route: 042
  34. LACTULOSE. [Suspect]
     Active Substance: LACTULOSE
     Indication: ILL-DEFINED DISORDER
     Dosage: DAILY DOSE: 10 MILLILITRE(S)
     Route: 065
     Dates: start: 2006
  35. LACTULOSE. [Suspect]
     Active Substance: LACTULOSE
     Dosage: 0 ML, QD
     Route: 065
  36. SODIUM BICARBONATE. [Suspect]
     Active Substance: SODIUM BICARBONATE
     Dosage: 100 MILLIGRAM
     Route: 042
  37. PARACETAMOL [Suspect]
     Active Substance: ACETAMINOPHEN
     Indication: ILL-DEFINED DISORDER
     Dosage: DAILY DOSE: UNKNOWN
     Route: 065
     Dates: start: 2006
  38. BACTROBAN [Suspect]
     Active Substance: MUPIROCIN\MUPIROCIN CALCIUM
     Indication: ILL-DEFINED DISORDER
     Dosage: UNKNOWN/D
     Route: 065
     Dates: start: 2006
  39. CALCIUM CHLORIDE                   /07362502/ [Suspect]
     Active Substance: CALCIUM CHLORIDE
     Dosage: UNK
     Route: 065
  40. FRAGMIN [Suspect]
     Active Substance: DALTEPARIN SODIUM
     Dosage: 250 INTERNATIONAL UNIT, QD
     Route: 058
  41. HYDROCORTISONE                     /00028602/ [Suspect]
     Active Substance: HYDROCORTISONE
     Indication: PRODUCT USED FOR UNKNOWN INDICATION
     Dosage: 100 MILLIGRAM, QD
     Route: 042
     Dates: start: 2006
  42. HYDROCORTISONE                     /00028602/ [Suspect]
     Active Substance: HYDROCORTISONE
     Dosage: 100 MILLIGRAM, QD
     Route: 042
  43. SANDO K                            /00031402/ [Suspect]
     Active Substance: POTASSIUM CHLORIDE
     Dosage: DAILY DOSE: 6 DOSAGE FORM, 2 DF, TID
     Route: 061
     Dates: start: 2006
  44. POTASSIUM BICARBONATE. [Suspect]
     Active Substance: POTASSIUM BICARBONATE
     Indication: PRODUCT USED FOR UNKNOWN INDICATION
     Dosage: 2 DOSAGE FORM, TID
  45. POTASSIUM CHLORIDE. [Suspect]
     Active Substance: POTASSIUM CHLORIDE
     Dosage: UNK, UNK, TID
     Route: 065
  46. HEPARIN SODIUM. [Suspect]
     Active Substance: HEPARIN SODIUM
     Dosage: 3500 MCG, QD
     Route: 065
  47. FLAMAZINE [Suspect]
     Active Substance: SILVER SULFADIAZINE
     Indication: ILL-DEFINED DISORDER
     Dosage: UNK
     Route: 061
  48. ATROVENT [Concomitant]
     Active Substance: IPRATROPIUM BROMIDE
     Indication: ILL-DEFINED DISORDER
     Dosage: UNK UNK, PRN, (AS NECESSARY)
     Route: 048
  49. AMOXICILLIN TRIHYDRATE [Concomitant]
     Active Substance: AMOXICILLIN
     Indication: ILL-DEFINED DISORDER
     Dosage: 375 MILLIGRAM, TID
     Dates: start: 20060913
  50. METOCLOPRAMIDE                     /00041902/ [Concomitant]
     Active Substance: METOCLOPRAMIDE HYDROCHLORIDE
     Indication: ILL-DEFINED DISORDER
     Dosage: DAILY DOSE: 10 MILLIGRAM(S)
     Route: 042
  51. MIDODRINE [Concomitant]
     Active Substance: MIDODRINE
     Indication: ILL-DEFINED DISORDER
     Dosage: UNK, DAILY DOSE: UNKNOWN
     Route: 048
  52. PANTOPRAZOLE [Concomitant]
     Active Substance: PANTOPRAZOLE
     Indication: ILL-DEFINED DISORDER
     Dosage: 40 MILLIGRAM
     Route: 042
  53. VANCOMYCIN [Concomitant]
     Active Substance: VANCOMYCIN
     Indication: ILL-DEFINED DISORDER
     Dosage: DAILY DOSE: 1 GRAM(S)
     Route: 042
  54. CO?AMOXICLAV                       /01000301/ [Concomitant]
     Active Substance: AMOXICILLIN\CLAVULANATE POTASSIUM
     Indication: ILL-DEFINED DISORDER
     Dosage: DAILY DOSE: 1125 MILLIGRAM(S), 375 MG, TID
     Route: 065
     Dates: start: 20060913
  55. SIMVASTATIN. [Suspect]
     Active Substance: SIMVASTATIN
     Indication: ILL-DEFINED DISORDER
     Dosage: 40 MILLIGRAM, QD
     Route: 065
  56. OMEPRAZOLE. [Suspect]
     Active Substance: OMEPRAZOLE
     Indication: ILL-DEFINED DISORDER
     Dosage: 40 MILLIGRAM
     Route: 042
     Dates: start: 2006
  57. OMEPRAZOLE. [Suspect]
     Active Substance: OMEPRAZOLE
     Dosage: 40 MILLIGRAM
     Route: 042
  58. SIMVASTATIN. [Suspect]
     Active Substance: SIMVASTATIN
     Dosage: 40 MG, QD
     Route: 042
  59. LORAZEPAM. [Suspect]
     Active Substance: LORAZEPAM
     Indication: ILL-DEFINED DISORDER
     Dosage: UNK, (1?2MG ONCE ONLY)
     Route: 065
     Dates: start: 2006
  60. ROCEPHIN [Suspect]
     Active Substance: CEFTRIAXONE SODIUM
     Indication: ILL-DEFINED DISORDER
     Dosage: DAILY DOSE: 2 GRAM(S)
     Route: 042
     Dates: start: 2006
  61. ACTRAPID [Suspect]
     Active Substance: INSULIN HUMAN
     Indication: TOXIC EPIDERMAL NECROLYSIS
     Dosage: UNK, 50 UNITS/50ML
     Route: 042
     Dates: start: 2006
  62. CALCIUM GLUCONATE. [Suspect]
     Active Substance: CALCIUM GLUCONATE
     Dosage: 10 MILLILITER, QD
     Route: 042
  63. FRAGMIN [Suspect]
     Active Substance: DALTEPARIN SODIUM
     Dosage: DAILY DOSE: 2500 INTERNATIONAL UNITS, 2500 IU, QD
     Route: 065
  64. POTASSIUM CHLORIDE. [Suspect]
     Active Substance: POTASSIUM CHLORIDE
     Indication: ILL-DEFINED DISORDER
     Dosage: 2 DOSAGE FORM, TID
  65. POTASSIUM CHLORIDE. [Suspect]
     Active Substance: POTASSIUM CHLORIDE
     Dosage: UNK, QD, (40MMOLS/100ML INFUSION)
     Route: 065
  66. VITAMIN K [Suspect]
     Active Substance: PHYTONADIONE
     Indication: ILL-DEFINED DISORDER
     Dosage: UNK
     Route: 065
     Dates: start: 2006
  67. HEPARIN SODIUM. [Suspect]
     Active Substance: HEPARIN SODIUM
     Indication: PRODUCT USED FOR UNKNOWN INDICATION
     Dosage: 3500 MICROGRAM, QD
     Route: 065
  68. HYDROCORTISONE                     /00028602/ [Suspect]
     Active Substance: HYDROCORTISONE
     Indication: PRODUCT USED FOR UNKNOWN INDICATION
  69. METOCLOPRAMIDE                     /00041902/ [Concomitant]
     Active Substance: METOCLOPRAMIDE HYDROCHLORIDE
     Dosage: 10 MILLIGRAM, QD
     Route: 042
  70. TAZOCIN [Concomitant]
     Active Substance: PIPERACILLIN SODIUM\TAZOBACTAM SODIUM
     Indication: ILL-DEFINED DISORDER
     Dosage: 4.5 GRAM, TID
     Route: 042
  71. LACTULOSE. [Suspect]
     Active Substance: LACTULOSE
     Dosage: 10 ML
     Route: 050
  72. SALBUTAMOL [Suspect]
     Active Substance: ALBUTEROL
     Indication: ILL-DEFINED DISORDER
     Dosage: AS NECESSARY
     Route: 065
     Dates: start: 2006
  73. FUROSEMIDE. [Suspect]
     Active Substance: FUROSEMIDE
     Dosage: 20 UNK
     Route: 048
  74. THIAMINE. [Suspect]
     Active Substance: THIAMINE
     Dosage: DAILY DOSE: 100 MILLIGRAM(S)
     Route: 048
  75. ACTRAPID [Suspect]
     Active Substance: INSULIN HUMAN
     Dosage: UNK
     Route: 042
  76. AQUASEPT [Suspect]
     Active Substance: TRICLOSAN
     Indication: ILL-DEFINED DISORDER
     Dosage: UNK
     Dates: start: 2006
  77. AQUASEPT [Suspect]
     Active Substance: TRICLOSAN
     Dosage: UNK
     Route: 065
  78. BACTROBAN [Suspect]
     Active Substance: MUPIROCIN\MUPIROCIN CALCIUM
     Dosage: UNK
     Route: 065
  79. ZOTON [Suspect]
     Active Substance: LANSOPRAZOLE
     Dosage: 30 MG, QD
     Route: 065
  80. MAGNESIUM SULPHATE [Suspect]
     Active Substance: MAGNESIUM SULFATE
     Indication: PRODUCT USED FOR UNKNOWN INDICATION
     Dosage: UNK
  81. FLAMAZINE [Suspect]
     Active Substance: SILVER SULFADIAZINE
     Indication: PRODUCT USED FOR UNKNOWN INDICATION
     Dosage: UNK
     Route: 065
  82. TINZAPARIN [Suspect]
     Active Substance: TINZAPARIN
     Dosage: 3500 MCL
     Route: 065
  83. OMEPRAZOLE. [Suspect]
     Active Substance: OMEPRAZOLE
     Indication: PRODUCT USED FOR UNKNOWN INDICATION
     Dosage: 40 MG, QD
     Route: 048
  84. SODIUM HYDROGEN CARBONATE [Suspect]
     Active Substance: SODIUM BICARBONATE
     Indication: PRODUCT USED FOR UNKNOWN INDICATION
     Dosage: 100ML/HR
     Route: 042
  85. ERYTHROMYCIN                       /00020902/ [Concomitant]
     Active Substance: ERYTHROMYCIN
     Dosage: 250 MILLIGRAM, QD
     Route: 065
  86. TAZOBACTAM SODIUM [Concomitant]
     Active Substance: TAZOBACTAM SODIUM
     Dosage: 4.5 GRAM
  87. LORAZEPAM. [Suspect]
     Active Substance: LORAZEPAM
     Dosage: UNK
     Route: 065
  88. FUROSEMIDE. [Suspect]
     Active Substance: FUROSEMIDE
     Indication: ILL-DEFINED DISORDER
     Dosage: 20 MILLIGRAM, QD
     Route: 048
     Dates: start: 2006
  89. THIAMINE. [Suspect]
     Active Substance: THIAMINE
     Indication: ILL-DEFINED DISORDER
     Dosage: DAILY DOSE: 100 MILLIGRAM(S)
     Route: 048
     Dates: start: 2006
  90. PROPOFOL. [Suspect]
     Active Substance: PROPOFOL
     Indication: ILL-DEFINED DISORDER
     Dosage: UNK
     Dates: start: 2006
  91. CHLORPHENIRAMINE MALEATE. [Suspect]
     Active Substance: CHLORPHENIRAMINE MALEATE
     Indication: ILL-DEFINED DISORDER
     Dosage: 10 MILLIGRAM, QID
     Route: 042
     Dates: start: 2006
  92. DOBUTAMINE [Suspect]
     Active Substance: DOBUTAMINE HYDROCHLORIDE
     Indication: ILL-DEFINED DISORDER
     Dosage: UNKNOWN/D
     Dates: start: 2006
  93. ACTRAPID [Suspect]
     Active Substance: INSULIN HUMAN
     Dosage: UNK
     Route: 042
  94. FRAGMIN [Suspect]
     Active Substance: DALTEPARIN SODIUM
     Indication: ILL-DEFINED DISORDER
     Dosage: DAILY DOSE: 2500 INTERNATIONAL UNITS, 2500 IU, QD
     Route: 065
     Dates: start: 2006
  95. FRAGMIN [Suspect]
     Active Substance: DALTEPARIN SODIUM
     Dosage: 200 INTERNATIONAL UNIT, QD
     Route: 058
  96. FRAGMIN [Suspect]
     Active Substance: DALTEPARIN SODIUM
     Dosage: DAILY DOSE: 2500 INTERNATIONAL UNITS, 2500 IU, QD
     Route: 058
  97. SANDO K                            /00031402/ [Suspect]
     Active Substance: POTASSIUM CHLORIDE
     Indication: ILL-DEFINED DISORDER
     Dosage: UNK UNK, Q8H, (TID)
  98. AMOXICILLIN TRIHYDRATE [Suspect]
     Active Substance: AMOXICILLIN
     Dosage: 1 G, TID
     Route: 042
     Dates: start: 20060913
  99. TINZAPARIN [Suspect]
     Active Substance: TINZAPARIN
     Dosage: 3500 ML, QD
     Route: 065
  100. GLYCEROL W/MAGNESIUM SULFATE/PHENOL [Suspect]
     Active Substance: GLYCERIN\MAGNESIUM SULFATE\PHENOL
     Indication: ILL-DEFINED DISORDER
     Dosage: UNK, (10ML/50% 8MMOLS/50MLS)
     Route: 065
     Dates: start: 2006
  101. CLAVULANIC ACID [Concomitant]
     Active Substance: CLAVULANIC ACID
     Dosage: 375 MILLIGRAM, TID
     Dates: start: 20060913
  102. ERYTHROMYCIN                       /00020902/ [Concomitant]
     Active Substance: ERYTHROMYCIN
     Dosage: 250 MILLIGRAM
     Route: 065
  103. TAZOCIN [Concomitant]
     Active Substance: PIPERACILLIN SODIUM\TAZOBACTAM SODIUM
     Dosage: 13.5 G, QD
     Route: 065
  104. ZOPICLONE [Concomitant]
     Active Substance: ZOPICLONE
     Indication: ILL-DEFINED DISORDER
     Dosage: UNK
     Route: 048
  105. SIMVASTATIN. [Suspect]
     Active Substance: SIMVASTATIN
     Indication: ILL-DEFINED DISORDER
     Dosage: 40 MILLIGRAM, QD
     Route: 042
     Dates: start: 2006
  106. LACTULOSE. [Suspect]
     Active Substance: LACTULOSE
     Dosage: 10 ML
     Route: 065
  107. FUROSEMIDE. [Suspect]
     Active Substance: FUROSEMIDE
     Indication: ILL-DEFINED DISORDER
     Dosage: DAILY DOSE: 20 MILLIGRAM(S)
     Route: 042
     Dates: start: 2006
  108. FUROSEMIDE. [Suspect]
     Active Substance: FUROSEMIDE
     Dosage: 20 MG, BID
     Route: 042
     Dates: start: 2006
  109. SODIUM CHLORIDE. [Suspect]
     Active Substance: SODIUM CHLORIDE
     Dosage: 0.9 PERCENT, QD
     Route: 042
  110. SODIUM CHLORIDE. [Suspect]
     Active Substance: SODIUM CHLORIDE
     Dosage: 0.9 PERCENT
     Route: 042
  111. SODIUM BICARBONATE. [Suspect]
     Active Substance: SODIUM BICARBONATE
     Indication: ILL-DEFINED DISORDER
     Dosage: ADMINISTRATION OVER AN HOUR
     Route: 042
     Dates: start: 2006
  112. ALFENTANIL. [Suspect]
     Active Substance: ALFENTANIL
     Indication: ILL-DEFINED DISORDER
     Dosage: UNK
     Route: 042
     Dates: start: 2006
  113. ALFENTANIL. [Suspect]
     Active Substance: ALFENTANIL
     Dosage: UNK
     Route: 042
  114. CALCIUM CHLORIDE                   /07362502/ [Suspect]
     Active Substance: CALCIUM CHLORIDE
     Indication: ILL-DEFINED DISORDER
     Dosage: DAILY DOSE: UNKNOWN
     Dates: start: 2006
  115. CALCIUM GLUCONATE. [Suspect]
     Active Substance: CALCIUM GLUCONATE
     Indication: ILL-DEFINED DISORDER
     Dosage: 10 MILLILITER
     Route: 042
     Dates: start: 2006
  116. FLUCONAZOLE. [Suspect]
     Active Substance: FLUCONAZOLE
     Indication: ILL-DEFINED DISORDER
     Dosage: 200 MILLIGRAM, QD
     Route: 042
     Dates: start: 2006
  117. FRAGMIN [Suspect]
     Active Substance: DALTEPARIN SODIUM
     Dosage: 250 INTERNATIONAL UNIT, QD
     Route: 065
  118. ZOTON [Suspect]
     Active Substance: LANSOPRAZOLE
     Dosage: DAILY DOSE: 30 MILLIGRAM(S)
     Route: 065
  119. AMOXICILLIN TRIHYDRATE [Suspect]
     Active Substance: AMOXICILLIN
     Dosage: 1 G 3/1 DAYS
     Route: 042
  120. HYDROCORTISONE HYDROGEN SUCCINATE [Suspect]
     Active Substance: HYDROCORTISONE HEMISUCCINATE ANHYDROUS
     Indication: ILL-DEFINED DISORDER
     Dosage: DAILY DOSE: 100 MILLIGRAM(S), 100 MG, QD
     Route: 065
     Dates: start: 2006
  121. AMOXICILLIN. [Concomitant]
     Active Substance: AMOXICILLIN
     Dosage: 1 GRAM, QD, (3 GRAM(S), 1 G, TID)
     Route: 042
     Dates: start: 20060913
  122. ASPIRIN                            /00002701/ [Concomitant]
     Active Substance: ASPIRIN
     Indication: ILL-DEFINED DISORDER
     Dosage: UNKNOWN/D
     Route: 048
  123. ASPIRIN                            /00002701/ [Concomitant]
     Active Substance: ASPIRIN
     Dosage: UNK
     Route: 065
  124. CIPROFLOXACIN. [Concomitant]
     Active Substance: CIPROFLOXACIN
     Indication: ILL-DEFINED DISORDER
     Dosage: 400 MILLIGRAM, QD
     Route: 042
  125. PANTOPRAZOLE [Concomitant]
     Active Substance: PANTOPRAZOLE
     Dosage: 40 MG, QD
     Route: 042
  126. CO?AMOXICLAV                       /01000301/ [Concomitant]
     Active Substance: AMOXICILLIN\CLAVULANATE POTASSIUM
     Dosage: UNK
     Route: 065
  127. OMEPRAZOLE. [Suspect]
     Active Substance: OMEPRAZOLE
     Dosage: 40 MILLIGRAM
     Route: 042
  128. SODIUM CHLORIDE. [Suspect]
     Active Substance: SODIUM CHLORIDE
     Indication: ILL-DEFINED DISORDER
     Dosage: 0.9 PERCENT
     Route: 042
     Dates: start: 2006

REACTIONS (1)
  - Toxic epidermal necrolysis [Unknown]

NARRATIVE: CASE EVENT DATE: 2006
